FAERS Safety Report 9628464 (Version 1)
Quarter: 2013Q4

REPORT INFORMATION
  Report Type: Spontaneous
  Country: US (occurrence: US)
  Receive Date: 20131017
  Receipt Date: 20131017
  Transmission Date: 20140711
  Serious: No
  Sender: FDA-Public Use
  Company Number: US-PFIZER INC-2013294037

PATIENT
  Age: 59 Year
  Sex: Male
  Weight: 74.83 kg

DRUGS (7)
  1. INLYTA [Suspect]
     Indication: RENAL CELL CARCINOMA
     Dosage: 2 MG, 2X/DAY
     Route: 048
  2. OXYCODONE [Concomitant]
     Dosage: 20 MG, UNK
  3. NEXIUM [Concomitant]
     Dosage: 20 MG, UNK
  4. LEXAPRO [Concomitant]
     Dosage: 5 MG, UNK
  5. AMBIEN [Concomitant]
     Dosage: 5 MG, UNK
  6. XANAX [Concomitant]
     Dosage: 0.25 MG, UNK
  7. VITAMIN B12 [Concomitant]
     Dosage: 50 UG, UNK

REACTIONS (3)
  - Constipation [Unknown]
  - Haemoptysis [Recovered/Resolved]
  - Epistaxis [Not Recovered/Not Resolved]
